FAERS Safety Report 24034968 (Version 1)
Quarter: 2024Q2

REPORT INFORMATION
  Report Type: Spontaneous
  Country: US (occurrence: None)
  Receive Date: 20240628
  Receipt Date: 20240628
  Transmission Date: 20240715
  Serious: Yes (Hospitalization)
  Sender: FDA-Public Use
  Company Number: None

PATIENT
  Sex: Female

DRUGS (2)
  1. OXBRYTA [Suspect]
     Active Substance: VOXELOTOR
     Indication: Sickle cell disease
     Dosage: 1500MG DAILY PO
     Route: 048
     Dates: start: 202204
  2. HYDROXYUREA [Suspect]
     Active Substance: HYDROXYUREA
     Dosage: 1500MG DAILY ORAL
     Route: 048
     Dates: start: 202405

REACTIONS (3)
  - Pneumonia [None]
  - Sickle cell anaemia with crisis [None]
  - Therapy interrupted [None]
